FAERS Safety Report 20773615 (Version 8)
Quarter: 2022Q3

REPORT INFORMATION
  Report Type: Report from Study
  Country: DE (occurrence: DE)
  Receive Date: 20220502
  Receipt Date: 20220727
  Transmission Date: 20221027
  Serious: Yes (Hospitalization, Other)
  Sender: FDA-Public Use
  Company Number: DE-TAKEDA-2022TUS028537

PATIENT
  Sex: Male

DRUGS (3)
  1. VON WILLEBRAND FACTOR HUMAN [Suspect]
     Active Substance: VON WILLEBRAND FACTOR HUMAN
     Indication: Von Willebrand^s disease
     Dosage: 2600 INTERNATIONAL UNIT
     Route: 042
     Dates: start: 20220326
  2. VON WILLEBRAND FACTOR HUMAN [Suspect]
     Active Substance: VON WILLEBRAND FACTOR HUMAN
     Dosage: 3900 INTERNATIONAL UNIT, 2/WEEK
     Route: 042
     Dates: start: 20220429
  3. VON WILLEBRAND FACTOR HUMAN [Suspect]
     Active Substance: VON WILLEBRAND FACTOR HUMAN
     Dosage: 3900 INTERNATIONAL UNIT, 2/WEEK
     Route: 042
     Dates: start: 20220429

REACTIONS (6)
  - Prostatic haemorrhage [Recovered/Resolved]
  - Blood urine present [Recovering/Resolving]
  - Cystitis [Recovered/Resolved]
  - COVID-19 [Recovering/Resolving]
  - Weight decreased [Unknown]
  - Off label use [Unknown]

NARRATIVE: CASE EVENT DATE: 20220414
